FAERS Safety Report 9513030 (Version 1)
Quarter: 2013Q1

REPORT INFORMATION
  Report Type: Spontaneous
  Country: US (occurrence: None)
  Receive Date: 20130305
  Receipt Date: 20130305
  Transmission Date: 20140127
  Serious: Yes (Other)
  Sender: FDA-Public Use
  Company Number: 163-21880-12101555

PATIENT
  Age: 65 Year
  Sex: Male
  Weight: 119 kg

DRUGS (3)
  1. REVLIMID (LENALIDOMIDE) (CAPSULES) [Suspect]
     Indication: CHRONIC LYMPHOCYTIC LEUKAEMIA
     Dosage: 1 IN 1 D
     Route: 048
     Dates: start: 20120712
  2. FISH OIL [Concomitant]
  3. GLYBURIDE [Concomitant]

REACTIONS (2)
  - Neutrophil count decreased [None]
  - Platelet count decreased [None]
